FAERS Safety Report 24593268 (Version 1)
Quarter: 2024Q4

REPORT INFORMATION
  Report Type: Spontaneous
  Country: US (occurrence: None)
  Receive Date: 20241107
  Receipt Date: 20241107
  Transmission Date: 20250115
  Serious: No
  Sender: Public
  Company Number: None

PATIENT
  Age: 77 Year
  Sex: Female

DRUGS (1)
  1. OTEZLA [Suspect]
     Active Substance: APREMILAST
     Indication: Psoriasis
     Dosage: FREQUENCY : TWICE A DAY;?
     Route: 048
     Dates: start: 202406

REACTIONS (2)
  - Illness [None]
  - Therapy interrupted [None]
